FAERS Safety Report 9134759 (Version 1)
Quarter: 2013Q1

REPORT INFORMATION
  Report Type: Spontaneous
  Country: US (occurrence: US)
  Receive Date: 20130304
  Receipt Date: 20130304
  Transmission Date: 20140127
  Serious: No
  Sender: FDA-Public Use
  Company Number: US-PFIZER INC-2013070683

PATIENT
  Sex: Female

DRUGS (2)
  1. PROTONIX [Suspect]
     Dosage: UNK
     Dates: start: 20130101, end: 20130204
  2. CELEBREX [Suspect]
     Dosage: UNK
     Dates: start: 20130101, end: 20130104

REACTIONS (1)
  - Pain [Unknown]
